FAERS Safety Report 6817731-6 (Version None)
Quarter: 2010Q3

REPORT INFORMATION
  Report Type: 
  Country: None (occurrence: None)
  Receive Date: 20100706
  Receipt Date: 20100624
  Transmission Date: 20110219
  Serious: Yes (Death, Other)
  Sender: FDA-Public Use
  Company Number: TR-PFIZER INC-2009311839

PATIENT
  Age: 54 Year
  Sex: Male
  Weight: 73 kg

DRUGS (14)
  1. ANIDULAFUNGIN [Suspect]
     Indication: SYSTEMIC CANDIDA
     Dosage: 200 MG, 1X/DAY
     Route: 042
     Dates: start: 20091210, end: 20091210
  2. ANIDULAFUNGIN [Suspect]
     Dosage: 100 MG, 1X/DAY
     Route: 042
     Dates: start: 20091211, end: 20091214
  3. PETHIDINE HYDROCHLORIDE [Concomitant]
     Dosage: UNK
     Route: 042
     Dates: start: 20091126
  4. LORAZEPAM [Concomitant]
     Dosage: UNK
     Route: 048
     Dates: start: 20091126
  5. FENTANYL [Concomitant]
     Dosage: UNK
     Route: 062
     Dates: start: 20091126
  6. METRONIDAZOLE [Concomitant]
     Dosage: UNK
     Route: 042
     Dates: start: 20091126
  7. GRANISETRON [Concomitant]
     Dosage: UNK
     Route: 042
     Dates: start: 20091126
  8. FILGRASTIM [Concomitant]
     Dosage: UNK
     Route: 058
     Dates: start: 20091126
  9. TEICOPLANIN [Concomitant]
     Dosage: UNK
     Route: 042
     Dates: start: 20091208
  10. IMIPENEM [Concomitant]
     Dosage: UNK
     Route: 042
     Dates: start: 20091130
  11. ONDANSETRON [Concomitant]
     Dosage: UNK
     Route: 042
     Dates: start: 20091126
  12. SUCRALFATE [Concomitant]
     Dosage: UNK
     Route: 042
     Dates: start: 20091126
  13. PARACETAMOL [Concomitant]
     Dosage: UNK
     Route: 042
     Dates: start: 20091126
  14. ESCITALOPRAM [Concomitant]
     Dosage: UNK
     Route: 048
     Dates: start: 20091126

REACTIONS (2)
  - CONVULSION [None]
  - DEATH [None]
